FAERS Safety Report 7950265-4 (Version None)
Quarter: 2011Q4

REPORT INFORMATION
  Report Type: 
  Country: None (occurrence: None)
  Receive Date: 20111130
  Receipt Date: 20111123
  Transmission Date: 20120403
  Serious: Yes (Other)
  Sender: FDA-Public Use
  Company Number: US-JNJFOC-20111106020

PATIENT
  Age: 3 Year
  Sex: Female
  Weight: 14.06 kg

DRUGS (2)
  1. CHILDREN'S ZYRTEC ALLERGY [Suspect]
     Indication: RHINORRHOEA
     Dosage: IN APRIL OR MAY 2011 WAS GIVEN 1/2 TEASPOON EVERY NIGHT
     Route: 048
  2. CHILDREN'S ZYRTEC ALLERGY [Suspect]
     Indication: COUGH
     Dosage: IN APRIL OR MAY 2011 WAS GIVEN 1/2 TEASPOON EVERY NIGHT
     Route: 048

REACTIONS (2)
  - OFF LABEL USE [None]
  - CONVULSION [None]
